FAERS Safety Report 9223638 (Version 1)
Quarter: 2013Q2

REPORT INFORMATION
  Report Type: Spontaneous
  Country: CH (occurrence: CH)
  Receive Date: 20130410
  Receipt Date: 20130410
  Transmission Date: 20140414
  Serious: Yes (Hospitalization)
  Sender: FDA-Public Use
  Company Number: CH-GLAXOSMITHKLINE-B0882271A

PATIENT
  Sex: Male

DRUGS (7)
  1. WELLVONE [Suspect]
     Indication: PRODUCT USED FOR UNKNOWN INDICATION
     Dosage: 10ML PER DAY
     Route: 048
     Dates: start: 201212, end: 20130121
  2. PEGASYS [Suspect]
     Indication: PRODUCT USED FOR UNKNOWN INDICATION
     Dosage: 135MCG WEEKLY
     Route: 058
     Dates: start: 20121217, end: 20130124
  3. COPEGUS [Suspect]
     Indication: PRODUCT USED FOR UNKNOWN INDICATION
     Dosage: 200MG TWICE PER DAY
     Route: 048
     Dates: start: 20121217, end: 20130124
  4. TELAPREVIR [Suspect]
     Indication: PRODUCT USED FOR UNKNOWN INDICATION
     Dosage: 375MG THREE TIMES PER DAY
     Route: 048
     Dates: start: 20121217, end: 20130124
  5. CELLCEPT [Suspect]
     Indication: PRODUCT USED FOR UNKNOWN INDICATION
     Dosage: 250MG THREE TIMES PER DAY
     Route: 048
     Dates: start: 20120625, end: 20130115
  6. PROGRAF [Suspect]
     Indication: PRODUCT USED FOR UNKNOWN INDICATION
     Route: 048
     Dates: start: 201206
  7. VALCYTE [Suspect]
     Indication: PRODUCT USED FOR UNKNOWN INDICATION
     Dosage: 450MG TWICE PER DAY
     Route: 048
     Dates: start: 20121123, end: 20130121

REACTIONS (3)
  - Pancytopenia [Recovering/Resolving]
  - Pneumocystis jirovecii infection [Recovered/Resolved]
  - Hepatitis cholestatic [Unknown]
